FAERS Safety Report 17654444 (Version 2)
Quarter: 2020Q2

REPORT INFORMATION
  Report Type: Spontaneous
  Country: FR (occurrence: FR)
  Receive Date: 20200410
  Receipt Date: 20200519
  Transmission Date: 20200713
  Serious: Yes (Other)
  Sender: FDA-Public Use
  Company Number: FR-AUROBINDO-AUR-APL-2020-017303

PATIENT
  Age: 76 Year
  Sex: Female

DRUGS (6)
  1. PLAQUENIL [Suspect]
     Active Substance: HYDROXYCHLOROQUINE SULFATE
     Indication: PNEUMONIA LEGIONELLA
     Dosage: 3 DOSAGE FORM
     Route: 065
  2. PLAQUENIL [Suspect]
     Active Substance: HYDROXYCHLOROQUINE SULFATE
     Indication: SYSTEMIC LUPUS ERYTHEMATOSUS
  3. AMOXICILLIN+CLAVULANIC ACID [Suspect]
     Active Substance: AMOXICILLIN\CLAVULANIC ACID
     Indication: CORONAVIRUS INFECTION
     Dosage: UNK
     Route: 065
  4. AMOXICILLIN+CLAVULANIC ACID [Suspect]
     Active Substance: AMOXICILLIN\CLAVULANIC ACID
     Indication: PNEUMONIA LEGIONELLA
  5. AMOXICILLIN+CLAVULANIC ACID [Suspect]
     Active Substance: AMOXICILLIN\CLAVULANIC ACID
     Indication: PARONYCHIA
  6. PLAQUENIL [Suspect]
     Active Substance: HYDROXYCHLOROQUINE SULFATE
     Indication: CORONAVIRUS INFECTION
     Dosage: 2 DOSAGE FORM, TWO TIMES A DAY (ONE IN MORNING AND ONE IN EVENING)
     Route: 065
     Dates: start: 1999

REACTIONS (14)
  - Constipation [Unknown]
  - Burning sensation [Unknown]
  - Toe amputation [Unknown]
  - Intentional product misuse [Unknown]
  - Systemic lupus erythematosus [Unknown]
  - Skin plaque [Unknown]
  - Paronychia [Unknown]
  - Off label use [Unknown]
  - Malaise [Unknown]
  - Breast cancer metastatic [Unknown]
  - Blood pressure abnormal [Unknown]
  - Dementia Alzheimer^s type [Unknown]
  - Gait disturbance [Unknown]
  - Expired product administered [Unknown]

NARRATIVE: CASE EVENT DATE: 20191213
